FAERS Safety Report 23748567 (Version 1)
Quarter: 2024Q2

REPORT INFORMATION
  Report Type: Spontaneous
  Country: CN (occurrence: CN)
  Receive Date: 20240416
  Receipt Date: 20240416
  Transmission Date: 20240715
  Serious: Yes (Hospitalization, Other)
  Sender: FDA-Public Use
  Company Number: CN-SUN PHARMACEUTICAL INDUSTRIES LTD-2024R1-441430

PATIENT
  Sex: Male

DRUGS (6)
  1. DEXMEDETOMIDINE [Suspect]
     Active Substance: DEXMEDETOMIDINE
     Indication: Sedation
     Dosage: LOADING DOSE OF 0.5 UG/KG FOR 10 MIN
     Route: 064
  2. DEXMEDETOMIDINE [Suspect]
     Active Substance: DEXMEDETOMIDINE
     Dosage: MAINTENANCE DOSE OF 0.3 UG/KG/MIN
     Route: 064
  3. FENTANYL [Suspect]
     Active Substance: FENTANYL\FENTANYL CITRATE
     Indication: Anaesthesia procedure
     Dosage: UNK (UMBILICAL VEIN INJECTION OF 10 UG)
     Route: 064
  4. VECURONIUM [Suspect]
     Active Substance: VECURONIUM BROMIDE
     Indication: Anaesthesia procedure
     Dosage: UNK (UMBILICAL VEIN INJECTION 0.1 MG)
     Route: 064
  5. EPINEPHRINE [Suspect]
     Active Substance: EPINEPHRINE
     Indication: Product used for unknown indication
     Dosage: UNK (1 UG) THROUGH THE BALLOON CATHETER
     Route: 064
  6. ROPIVACAINE [Suspect]
     Active Substance: ROPIVACAINE
     Indication: Epidural anaesthesia
     Dosage: UNK (2ML OF 0.5%) (2 ML OF 0.75%)
     Route: 064

REACTIONS (2)
  - Foetal exposure during pregnancy [Unknown]
  - Bradycardia foetal [Recovered/Resolved]
